FAERS Safety Report 9620793 (Version 7)
Quarter: 2013Q4

REPORT INFORMATION
  Report Type: Spontaneous
  Country: GB (occurrence: GB)
  Receive Date: 20131015
  Receipt Date: 20131126
  Transmission Date: 20140711
  Serious: Yes (Other)
  Sender: FDA-Public Use
  Company Number: GB-009507513-1310GBR005240

PATIENT
  Age: 33 Year
  Sex: Female
  Weight: 72 kg

DRUGS (1)
  1. NEXPLANON [Suspect]
     Indication: CONTRACEPTION
     Dosage: UNK
     Route: 059
     Dates: start: 20120513

REACTIONS (5)
  - Abortion induced [Unknown]
  - Unintended pregnancy [Recovered/Resolved]
  - Device difficult to use [Unknown]
  - Medical device complication [Unknown]
  - Drug dose omission [Unknown]
